FAERS Safety Report 4810240-5 (Version None)
Quarter: 2005Q4

REPORT INFORMATION
  Report Type: 
  Country: None (occurrence: None)
  Receive Date: 20051026
  Receipt Date: 20050817
  Transmission Date: 20060501
  Serious: Yes (Hospitalization)
  Sender: FDA-Public Use
  Company Number: JP-GLAXOSMITHKLINE-B0391166A

PATIENT
  Age: 22 Year
  Sex: Female

DRUGS (5)
  1. PAXIL [Suspect]
     Indication: DEPRESSION
     Dosage: 20MG PER DAY
     Route: 048
  2. SEDIEL [Concomitant]
     Dosage: 10MG TWICE PER DAY
     Route: 048
  3. ZOPICLONE [Concomitant]
     Dosage: 1TAB PER DAY
     Route: 048
  4. FLUNITRAZEPAM [Concomitant]
     Dosage: 1MG PER DAY
     Route: 048
  5. LEXOTAN [Concomitant]
     Dosage: 10MG PER DAY
     Route: 048

REACTIONS (11)
  - ANHEDONIA [None]
  - DEPRESSED LEVEL OF CONSCIOUSNESS [None]
  - DISSOCIATION [None]
  - FEELING ABNORMAL [None]
  - IMPULSE-CONTROL DISORDER [None]
  - INJURY ASPHYXIATION [None]
  - OVERDOSE [None]
  - SELF INJURIOUS BEHAVIOUR [None]
  - SKIN LACERATION [None]
  - SOMNOLENCE [None]
  - SUICIDE ATTEMPT [None]
